FAERS Safety Report 6032225-6 (Version None)
Quarter: 2009Q1

REPORT INFORMATION
  Report Type: 
  Country: None (occurrence: None)
  Receive Date: 20090108
  Receipt Date: 20081224
  Transmission Date: 20090719
  Serious: No
  Sender: FDA-Public Use
  Company Number: US-B.I. PHARMACEUTICALS,INC./RIDGEFIELD-2008-BP-16982BP

PATIENT
  Age: 72 Year
  Sex: Male

DRUGS (11)
  1. SPIRIVA [Suspect]
     Indication: CHRONIC OBSTRUCTIVE PULMONARY DISEASE
     Dosage: 18MCG
     Route: 055
  2. ALBUTEROL [Concomitant]
  3. METFORMIN HCL [Concomitant]
     Dosage: 1700MG
  4. LOVASTATIN [Concomitant]
  5. GLIPIZIDE [Concomitant]
     Dosage: 5MG
  6. FLUDROCORTISONE ACETATE [Concomitant]
  7. TERATOSIN [Concomitant]
     Dosage: 20MG
  8. LISINOPRIL [Concomitant]
  9. ACIPHEX [Concomitant]
  10. FLOMAX [Concomitant]
  11. SYMBICORT [Concomitant]
     Dosage: 4PUF

REACTIONS (4)
  - CONDITION AGGRAVATED [None]
  - DRUG EFFECT DECREASED [None]
  - DRUG INEFFECTIVE [None]
  - DYSURIA [None]
